FAERS Safety Report 22336258 (Version 14)
Quarter: 2024Q2

REPORT INFORMATION
  Report Type: Spontaneous
  Country: CA (occurrence: CA)
  Receive Date: 20230518
  Receipt Date: 20240524
  Transmission Date: 20240716
  Serious: Yes (Other)
  Sender: FDA-Public Use
  Company Number: CA-CELLTRION INC.-2023CA010173

PATIENT

DRUGS (14)
  1. INFLECTRA [Suspect]
     Active Substance: INFLIXIMAB-DYYB
     Indication: Crohn^s disease
     Dosage: 5 MG/KG, INDUCTION W (WEEK) 0,2,6 THEN Q (EVERY) 8 WEEKS
     Route: 042
     Dates: start: 20230425
  2. INFLECTRA [Suspect]
     Active Substance: INFLIXIMAB-DYYB
     Dosage: 5 MG/KG, INDUCTION W (WEEK) 0,2,6 THEN Q (EVERY) 8 WEEKS
     Route: 042
     Dates: start: 20230510
  3. INFLECTRA [Suspect]
     Active Substance: INFLIXIMAB-DYYB
     Dosage: 289 MG (5 MG/KG), WEEK 8 (INDUCTION W0,2,6 THEN Q8 WEEKS)
     Route: 042
     Dates: start: 20230607, end: 20230607
  4. INFLECTRA [Suspect]
     Active Substance: INFLIXIMAB-DYYB
     Dosage: 5 MG/KG, EVERY 6 WEEKS
     Route: 042
     Dates: start: 20230726
  5. INFLECTRA [Suspect]
     Active Substance: INFLIXIMAB-DYYB
     Dosage: 5 MG/KG, EVERY 6 WEEKS
     Route: 042
     Dates: start: 20230906
  6. INFLECTRA [Suspect]
     Active Substance: INFLIXIMAB-DYYB
     Dosage: 300 MG, EVERY 6 WEEKS (5MG/KG)
     Route: 042
     Dates: start: 20231018
  7. INFLECTRA [Suspect]
     Active Substance: INFLIXIMAB-DYYB
     Dosage: 300 MG (5MG/KG), AFTER 5 WEEKS AND 6 DAYS (EVERY 4 WEEK) ROUND TO NEAREST 100TH
     Route: 042
     Dates: start: 20231128
  8. INFLECTRA [Suspect]
     Active Substance: INFLIXIMAB-DYYB
     Dosage: 300 MG (5 MG/KG), 4 WEEKS
     Route: 042
     Dates: start: 20231226
  9. INFLECTRA [Suspect]
     Active Substance: INFLIXIMAB-DYYB
     Dosage: 300 MG (5 MG/KG), AFTER 4 WEEKS AND 1 DAY (EVERY 4 WEEKS) (ROUND TO NEAREST 100TH)
     Route: 042
     Dates: start: 20240123, end: 20240123
  10. INFLECTRA [Suspect]
     Active Substance: INFLIXIMAB-DYYB
     Dosage: 10 MG/KG, EVERY 4 WEEKS, (600MG, EVERY 4 WEEKS)
     Route: 042
     Dates: start: 20240220
  11. INFLECTRA [Suspect]
     Active Substance: INFLIXIMAB-DYYB
     Dosage: 10 MG/KG, EVERY 4 WEEKS
     Route: 042
     Dates: start: 20240319
  12. INFLECTRA [Suspect]
     Active Substance: INFLIXIMAB-DYYB
     Dosage: 10 MG/KG, EVERY 4 WEEKS
     Route: 042
     Dates: start: 20240416
  13. CORTISONE [Concomitant]
     Active Substance: CORTISONE
     Dosage: 35 MG, 1X/DAY
     Route: 048
  14. IMURAN [Concomitant]
     Active Substance: AZATHIOPRINE
     Dosage: UNK, 1X/DAY

REACTIONS (8)
  - Condition aggravated [Recovering/Resolving]
  - Therapeutic product effect decreased [Recovering/Resolving]
  - Therapeutic response shortened [Not Recovered/Not Resolved]
  - Blood pressure diastolic increased [Not Recovered/Not Resolved]
  - Weight decreased [Unknown]
  - Night sweats [Recovering/Resolving]
  - Off label use [Unknown]
  - Inappropriate schedule of product administration [Unknown]

NARRATIVE: CASE EVENT DATE: 20230101
